FAERS Safety Report 24253628 (Version 2)
Quarter: 2024Q4

REPORT INFORMATION
  Report Type: Spontaneous
  Country: US (occurrence: US)
  Receive Date: 20240827
  Receipt Date: 20241018
  Transmission Date: 20250115
  Serious: No
  Sender: ALEXION PHARMACEUTICALS
  Company Number: 2024A185128

PATIENT

DRUGS (4)
  1. FASENRA [Suspect]
     Active Substance: BENRALIZUMAB
     Dosage: UNK UNK, QMONTH
  2. FASENRA [Suspect]
     Active Substance: BENRALIZUMAB
     Dosage: UNK UNK, QMONTH
  3. FASENRA [Suspect]
     Active Substance: BENRALIZUMAB
     Dosage: UNK UNK, QMONTH
  4. FASENRA [Suspect]
     Active Substance: BENRALIZUMAB
     Dosage: UNK UNK, QMONTH

REACTIONS (5)
  - Panic reaction [Unknown]
  - Device expulsion [Unknown]
  - Wrong technique in device usage process [Unknown]
  - Incorrect dose administered by device [Unknown]
  - Drug dose omission by device [Unknown]
